FAERS Safety Report 14695630 (Version 1)
Quarter: 2018Q1

REPORT INFORMATION
  Report Type: Report from Study
  Country: US (occurrence: US)
  Receive Date: 20180329
  Receipt Date: 20180329
  Transmission Date: 20180509
  Serious: Yes (Hospitalization, Other)
  Sender: FDA-Public Use
  Company Number: US-UCBSA-2018011828

PATIENT
  Age: 40 Year
  Sex: Female
  Weight: 107 kg

DRUGS (49)
  1. CERTOLIZUMAB PEGOL RA [Suspect]
     Active Substance: CERTOLIZUMAB PEGOL
     Indication: CROHN^S DISEASE
  2. ALBUTEROL. [Concomitant]
     Active Substance: ALBUTEROL
     Indication: ASTHMA
     Dosage: 2.5 MG, UNK
     Dates: start: 20150714, end: 20150930
  3. BENADRYL [Concomitant]
     Active Substance: DIPHENHYDRAMINE HYDROCHLORIDE
     Indication: PRODUCT USED FOR UNKNOWN INDICATION
     Dosage: UNK
     Route: 048
     Dates: start: 20150706, end: 20151117
  4. BENZONATATE. [Concomitant]
     Active Substance: BENZONATATE
     Indication: COUGH
     Dosage: 100 MG, UNK
     Route: 048
     Dates: start: 20150414, end: 20150424
  5. XOLAIR [Concomitant]
     Active Substance: OMALIZUMAB
     Indication: ASTHMA
     Dosage: UNK
  6. BENZONATATE. [Concomitant]
     Active Substance: BENZONATATE
     Indication: BRONCHITIS
     Dosage: 1 DF, 5X/WEEK
     Route: 048
     Dates: start: 20150710, end: 20151117
  7. CITRUCEL [Concomitant]
     Active Substance: METHYLCELLULOSE (4000 MPA.S)
     Indication: SUPPLEMENTATION THERAPY
     Dosage: 2 DF, ONCE DAILY (QD)
     Route: 048
     Dates: start: 20150401, end: 20151117
  8. DOXYLAMINE [Concomitant]
     Active Substance: DOXYLAMINE
     Indication: NAUSEA
     Dosage: 10 MG, ONCE DAILY (QD)
     Route: 048
     Dates: start: 20150401, end: 20150401
  9. ESTRADIOL. [Concomitant]
     Active Substance: ESTRADIOL
     Indication: PRODUCT USED FOR UNKNOWN INDICATION
     Dosage: UNK, WEEKLY (QW)
     Dates: start: 20150227, end: 20150508
  10. PREDNISONE. [Concomitant]
     Active Substance: PREDNISONE
     Indication: PRODUCT USED FOR UNKNOWN INDICATION
     Dosage: 10 MG, ONCE DAILY (QD)
     Route: 048
     Dates: start: 20150227, end: 20150713
  11. CERTOLIZUMAB PEGOL RA [Suspect]
     Active Substance: CERTOLIZUMAB PEGOL
     Indication: RHEUMATOID ARTHRITIS
     Dosage: 200 MG, 2X/MONTH
     Dates: start: 20120701, end: 20151117
  12. ADVAIR HFA [Concomitant]
     Active Substance: FLUTICASONE PROPIONATE\SALMETEROL XINAFOATE
     Indication: ASTHMA
     Dosage: UNK, (INHALED 2 PUFF) 2X/DAY (BID)
     Dates: start: 20150711, end: 20151117
  13. CRINONE [Concomitant]
     Active Substance: PROGESTERONE
     Indication: PRODUCT USED FOR UNKNOWN INDICATION
     Dosage: UNK, 2X/DAY (BID)
     Route: 061
     Dates: start: 20150313, end: 20150605
  14. DOXYLAMINE [Concomitant]
     Active Substance: DOXYLAMINE
     Dosage: 10 MG, ONCE DAILY (QD)
     Route: 048
     Dates: start: 20150404, end: 20150404
  15. LOVENOX [Concomitant]
     Active Substance: ENOXAPARIN SODIUM
     Indication: PRODUCT USED FOR UNKNOWN INDICATION
     Dosage: 60 MG, ONCE DAILY (QD)
     Dates: start: 20150227, end: 20150430
  16. LOVENOX [Concomitant]
     Active Substance: ENOXAPARIN SODIUM
     Dosage: 60 MG, ONCE DAILY (QD)
     Dates: start: 20150515, end: 20150717
  17. ZITHROMAX [Concomitant]
     Active Substance: AZITHROMYCIN DIHYDRATE
     Dosage: 1 DF, ONCE DAILY (QD)
     Route: 048
     Dates: start: 20150415, end: 20150423
  18. ZYRTEC [Concomitant]
     Active Substance: CETIRIZINE HYDROCHLORIDE
     Indication: HYPERSENSITIVITY
     Dosage: 10 MG, ONCE DAILY (QD)
     Route: 048
     Dates: start: 20150227, end: 20151117
  19. ZITHROMAX [Concomitant]
     Active Substance: AZITHROMYCIN DIHYDRATE
     Indication: RESPIRATORY TRACT INFECTION
     Dosage: UNK
     Dates: start: 201506, end: 20150704
  20. ALBUTEROL. [Concomitant]
     Active Substance: ALBUTEROL
     Dosage: 2.5 MG, ONCE DAILY (QD)
     Dates: start: 20151001, end: 20151117
  21. LEVAQUIN [Concomitant]
     Active Substance: LEVOFLOXACIN
     Indication: BRONCHITIS
     Dosage: 1 DF, ONCE DAILY (QD)
     Route: 048
     Dates: start: 20150413, end: 20150413
  22. PREVACID [Concomitant]
     Active Substance: LANSOPRAZOLE
     Indication: GASTROOESOPHAGEAL REFLUX DISEASE
     Dosage: UNK
     Route: 048
  23. RHINOCORT [Concomitant]
     Active Substance: BUDESONIDE
     Indication: PRODUCT USED FOR UNKNOWN INDICATION
     Dosage: UNK, ONCE DAILY (QD)
     Dates: start: 20150711, end: 20151117
  24. CAFFEINE. [Concomitant]
     Active Substance: CAFFEINE
     Indication: PRODUCT USED FOR UNKNOWN INDICATION
     Dosage: UNK
     Route: 048
     Dates: start: 20150801, end: 20151117
  25. PYRIDOXINE [Concomitant]
     Active Substance: PYRIDOXINE
     Dosage: 10 MG, ONCE DAILY (QD)
     Route: 048
     Dates: start: 20150404, end: 20150404
  26. FLOVENT [Concomitant]
     Active Substance: FLUTICASONE PROPIONATE
     Indication: ASTHMA
     Dosage: UNK, ONCE DAILY (QD)
     Dates: start: 20150227, end: 20150710
  27. METHYLPREDNISOLONE. [Concomitant]
     Active Substance: METHYLPREDNISOLONE
     Dosage: 16 MG, ONCE DAILY (QD)
     Route: 048
     Dates: start: 20150724, end: 20151117
  28. GUAIFENESIN. [Concomitant]
     Active Substance: GUAIFENESIN
     Indication: BRONCHITIS
     Dosage: 1200 MG, 2X/DAY (BID)
     Route: 048
     Dates: start: 20150414, end: 20150418
  29. SUDAFED [Concomitant]
     Active Substance: PSEUDOEPHEDRINE HYDROCHLORIDE
     Indication: RESPIRATORY TRACT INFECTION
     Dosage: 1 DF, 3X/WEEK
     Route: 048
     Dates: start: 20150720, end: 20151117
  30. DIPHTHERIA, TETANUS AND ACELLULAR PERTUSSIS [Concomitant]
     Indication: IMMUNISATION
     Dosage: 1 DF, TOTAL
     Dates: start: 19990701, end: 19991231
  31. ZITHROMAX [Concomitant]
     Active Substance: AZITHROMYCIN DIHYDRATE
     Dosage: 2 DF, ONCE DAILY (QD)
     Route: 048
     Dates: start: 20150712, end: 20150712
  32. ALIGN [Concomitant]
     Active Substance: BIFIDOBACTERIUM LONGUM SUBSP. INFANTIS
     Indication: PROBIOTIC THERAPY
     Dosage: 1 DF, ONCE DAILY (QD)
     Route: 048
     Dates: start: 20150227, end: 20151117
  33. HYDROXYCHLOROQUINE SULFATE. [Concomitant]
     Active Substance: HYDROXYCHLOROQUINE SULFATE
     Indication: ARTHRITIS
     Dosage: 200 MG, 2X/DAY (BID)
     Route: 048
     Dates: start: 20150227, end: 20150430
  34. METANX [Concomitant]
     Active Substance: LEVOMEFOLATE CALCIUM\METHYLCOBALAMIN\PYRIDOXAL PHOSPHATE ANHYDROUS
     Indication: PRODUCT USED FOR UNKNOWN INDICATION
     Dosage: 1 DF, ONCE DAILY (QD)
     Route: 048
     Dates: start: 20150227, end: 20151117
  35. METHYLPREDNISOLONE. [Concomitant]
     Active Substance: METHYLPREDNISOLONE
     Dosage: 12 MG, ONCE DAILY (QD)
     Route: 048
     Dates: start: 20150722, end: 20150723
  36. DIPHTHERIA, TETANUS AND ACELLULAR PERTUSSIS [Concomitant]
     Dosage: 1 DF, TOTAL
     Dates: start: 20150901, end: 20150907
  37. TUMS [Concomitant]
     Active Substance: CALCIUM CARBONATE
     Indication: DYSPEPSIA
     Dosage: 2 DF, 3X/DAY (TID)
     Route: 048
     Dates: start: 20150227, end: 20150515
  38. ZITHROMAX [Concomitant]
     Active Substance: AZITHROMYCIN DIHYDRATE
     Indication: BRONCHITIS
     Dosage: 2 DF, ONCE DAILY (QD)
     Route: 048
     Dates: start: 20150414, end: 20150414
  39. FISH OIL [Concomitant]
     Active Substance: FISH OIL
     Indication: PRODUCT USED FOR UNKNOWN INDICATION
     Dosage: 500 MG, 2X/DAY (BID)
     Route: 048
     Dates: start: 20150227, end: 20151117
  40. SINGULAIR [Concomitant]
     Active Substance: MONTELUKAST SODIUM
     Indication: ASTHMA
     Dosage: 1 DF, ONCE DAILY (QD)
     Route: 048
     Dates: start: 20150227, end: 20151117
  41. XOLAIR [Concomitant]
     Active Substance: OMALIZUMAB
     Dosage: 1 DF, MONTHLY (QM)
     Dates: start: 20150930, end: 20151117
  42. ZITHROMAX [Concomitant]
     Active Substance: AZITHROMYCIN DIHYDRATE
     Dosage: 1 DF, ONCE DAILY (QD)
     Route: 048
     Dates: start: 20150713, end: 20150716
  43. MORPHINE [Concomitant]
     Active Substance: MORPHINE
     Indication: ABDOMINAL PAIN
     Dosage: UNK
     Dates: start: 20150610, end: 20150610
  44. PYRIDOXINE [Concomitant]
     Active Substance: PYRIDOXINE
     Indication: NAUSEA
     Dosage: 10 MG, ONCE DAILY (QD)
     Route: 048
     Dates: start: 20150401, end: 20150401
  45. METHYLPREDNISOLONE. [Concomitant]
     Active Substance: METHYLPREDNISOLONE
     Indication: CROHN^S DISEASE
     Dosage: 16 MG, ONCE DAILY (QD)
     Route: 048
     Dates: start: 20150714, end: 20150721
  46. PRENATAL VITAMINS [Concomitant]
     Active Substance: VITAMINS
     Indication: PRODUCT USED FOR UNKNOWN INDICATION
     Dosage: 1 DF, ONCE DAILY (QD)
     Route: 048
     Dates: start: 20150227, end: 20151117
  47. DIPHTHERIA, TETANUS AND ACELLULAR PERTUSSIS [Concomitant]
     Dosage: 1 DF, TOTAL
     Dates: start: 20120701, end: 20121231
  48. TYLENOL [Concomitant]
     Active Substance: ACETAMINOPHEN
     Indication: PYREXIA
     Dosage: 3000 MG, ONCE DAILY (QD)
     Route: 048
     Dates: start: 20150408, end: 20150416
  49. VITAMIN D [Concomitant]
     Active Substance: CHOLECALCIFEROL
     Indication: PRODUCT USED FOR UNKNOWN INDICATION
     Dosage: 1000 IU, ONCE DAILY (QD)
     Route: 048
     Dates: start: 20150401, end: 20151117

REACTIONS (7)
  - Bronchitis [Recovered/Resolved]
  - Pregnancy [Unknown]
  - Hypertension [Unknown]
  - Respiratory tract infection [Recovered/Resolved]
  - Pyrexia [Recovered/Resolved]
  - Abdominal pain [Unknown]
  - Injury [Unknown]

NARRATIVE: CASE EVENT DATE: 20150313
